FAERS Safety Report 7311393-X (Version None)
Quarter: 2011Q1

REPORT INFORMATION
  Report Type: 
  Country: None (occurrence: None)
  Receive Date: 20110224
  Receipt Date: 20110222
  Transmission Date: 20110831
  Serious: Yes (Hospitalization, Other)
  Sender: FDA-Public Use
  Company Number: US-PFIZER INC-2010143655

PATIENT
  Sex: Male

DRUGS (6)
  1. IMITREX [Concomitant]
     Indication: MIGRAINE
     Dosage: UNK
     Dates: start: 20000101
  2. FLEXERIL [Concomitant]
     Indication: PAIN
     Dosage: UNK
     Dates: start: 20040101, end: 20090101
  3. CHANTIX [Suspect]
     Indication: SMOKING CESSATION THERAPY
     Dosage: 0.5MG/1MG, UNK
     Dates: start: 20070301, end: 20071101
  4. LEVAQUIN [Concomitant]
     Indication: INFECTION
     Dosage: UNK
     Dates: start: 20000101, end: 20090101
  5. CEPHALEXIN [Concomitant]
     Indication: INFECTION
     Dosage: UNK
     Dates: start: 20000101, end: 20090101
  6. ZOLOFT [Concomitant]
     Indication: DEPRESSION
     Dosage: UNK
     Dates: start: 20020101

REACTIONS (6)
  - SUICIDE ATTEMPT [None]
  - INTENTIONAL OVERDOSE [None]
  - ANXIETY [None]
  - INSOMNIA [None]
  - AGGRESSION [None]
  - DEPRESSION [None]
